FAERS Safety Report 19726073 (Version 2)
Quarter: 2021Q3

REPORT INFORMATION
  Report Type: Spontaneous
  Country: US (occurrence: US)
  Receive Date: 20210819
  Receipt Date: 20210824
  Transmission Date: 20211014
  Serious: Yes (Other)
  Sender: FDA-Public Use
  Company Number: US-TEVA-2021-US-1942297

PATIENT
  Age: 63 Year
  Sex: Male

DRUGS (10)
  1. DOXORUBICIN [Suspect]
     Active Substance: DOXORUBICIN
     Indication: MYXOFIBROSARCOMA
     Dosage: 2 CYCLES
     Route: 065
  2. DOCETAXEL. [Suspect]
     Active Substance: DOCETAXEL
     Indication: MYXOFIBROSARCOMA
     Dosage: 2 CYCLES
     Route: 065
  3. TEMOZOLOMIDE. [Suspect]
     Active Substance: TEMOZOLOMIDE
     Indication: MYXOFIBROSARCOMA
     Dosage: DAYS 1?5, WITH 28?DAY CYCLES FOR 43 CYCLES
     Route: 065
  4. PACLITAXEL. [Suspect]
     Active Substance: PACLITAXEL
     Indication: MYXOFIBROSARCOMA
     Dosage: 2 CYCLES
     Route: 065
  5. PAZOPANIB [Suspect]
     Active Substance: PAZOPANIB
     Indication: MYXOFIBROSARCOMA
     Dosage: 7 CYCLES
     Route: 065
  6. TOPOTECAN [Suspect]
     Active Substance: TOPOTECAN HYDROCHLORIDE
     Indication: MYXOFIBROSARCOMA
     Dosage: 7 CYCLES
     Route: 065
  7. ALDOXORUBICIN [Suspect]
     Active Substance: DOXORUBICIN
     Indication: MYXOFIBROSARCOMA
     Dosage: 2 CYCLES
     Route: 065
  8. TRABECTEDIN [Suspect]
     Active Substance: TRABECTEDIN
     Indication: MYXOFIBROSARCOMA
     Dosage: 2 CYCLES
     Route: 065
  9. GEMCITABINE. [Suspect]
     Active Substance: GEMCITABINE
     Indication: MYXOFIBROSARCOMA
     Dosage: 2 CYCLES
     Route: 065
  10. OLARATUMAB [Suspect]
     Active Substance: OLARATUMAB
     Indication: MYXOFIBROSARCOMA
     Dosage: 2 CYCLES
     Route: 065

REACTIONS (2)
  - Drug ineffective [Unknown]
  - Drug resistance [Unknown]
